FAERS Safety Report 15632264 (Version 1)
Quarter: 2018Q4

REPORT INFORMATION
  Report Type: Spontaneous
  Country: US (occurrence: US)
  Receive Date: 20181112
  Receipt Date: 20181112
  Transmission Date: 20190205
  Serious: Yes (Other)
  Sender: FDA-Public Use
  Company Number: None

PATIENT
  Age: 23 Year
  Weight: 53.98 kg

DRUGS (1)
  1. HYDROXYPROGESTERONE 250MG/ML [Suspect]
     Active Substance: HYDROXYPROGESTERONE
     Indication: PREMATURE LABOUR
     Route: 030
     Dates: start: 20181102

REACTIONS (1)
  - Urticaria [None]

NARRATIVE: CASE EVENT DATE: 20181102
